FAERS Safety Report 6809690-7 (Version None)
Quarter: 2010Q2

REPORT INFORMATION
  Report Type: 
  Country: None (occurrence: None)
  Receive Date: 20100630
  Receipt Date: 20100618
  Transmission Date: 20101027
  Serious: Yes (Life-Threatening)
  Sender: FDA-Public Use
  Company Number: JP-PFIZER INC-2010068445

PATIENT
  Age: 90 Year
  Sex: Male

DRUGS (1)
  1. ESTRACYT [Suspect]
     Indication: PROSTATE CANCER
     Dosage: 313.4 MG/DAY
     Route: 048
     Dates: start: 20091203, end: 20100414

REACTIONS (1)
  - PHARYNGEAL OEDEMA [None]
